FAERS Safety Report 14370517 (Version 2)
Quarter: 2018Q1

REPORT INFORMATION
  Report Type: Spontaneous
  Country: US (occurrence: US)
  Receive Date: 20180110
  Receipt Date: 20180227
  Transmission Date: 20180509
  Serious: No
  Sender: FDA-Public Use
  Company Number: US-PFIZER INC-2018006787

PATIENT
  Age: 59 Year
  Sex: Female

DRUGS (1)
  1. SUTENT [Suspect]
     Active Substance: SUNITINIB MALATE
     Indication: BONE CANCER
     Dosage: 50 MG, 1X/DAY
     Dates: start: 20171110, end: 20171206

REACTIONS (12)
  - Dyspnoea [Recovered/Resolved]
  - Dry mouth [Recovered/Resolved]
  - Nasal pruritus [Recovered/Resolved]
  - Hypertension [Recovered/Resolved]
  - Pruritus [Recovered/Resolved]
  - Stomatitis [Recovered/Resolved]
  - Sneezing [Recovered/Resolved]
  - Ageusia [Recovered/Resolved]
  - Diarrhoea [Recovered/Resolved]
  - Rhinorrhoea [Recovered/Resolved]
  - Dry eye [Recovered/Resolved]
  - Product use in unapproved indication [Unknown]

NARRATIVE: CASE EVENT DATE: 20171110
